FAERS Safety Report 4538794-7 (Version None)
Quarter: 2004Q4

REPORT INFORMATION
  Report Type: 
  Country: None (occurrence: None)
  Receive Date: 20041222
  Receipt Date: 20041206
  Transmission Date: 20050328
  Serious: Yes (Other)
  Sender: FDA-Public Use
  Company Number: USA030845039

PATIENT
  Age: 47 Year
  Sex: Female
  Weight: 57 kg

DRUGS (5)
  1. HUMALOG [Suspect]
     Indication: DIABETES MELLITUS
     Dates: start: 20010101
  2. INSULIN [Suspect]
     Indication: DIABETES MELLITUS
     Dates: start: 19680101, end: 20000101
  3. HUMULIN N [Suspect]
     Indication: DIABETES MELLITUS
     Dosage: 17 U/DAY
     Dates: start: 20000101
  4. HUMULIN U [Suspect]
     Indication: DIABETES MELLITUS
     Dates: start: 20030401, end: 20030401
  5. ONCOVIN [Suspect]
     Indication: IDIOPATHIC THROMBOCYTOPENIC PURPURA
     Dates: start: 19940101

REACTIONS (14)
  - ALOPECIA [None]
  - BLOOD BLISTER [None]
  - BLOOD URINE [None]
  - DIABETES MELLITUS INADEQUATE CONTROL [None]
  - DRUG INEFFECTIVE [None]
  - EYE REDNESS [None]
  - HAEMATOCHEZIA [None]
  - HAEMOPTYSIS [None]
  - HAIR DISORDER [None]
  - IDIOPATHIC THROMBOCYTOPENIC PURPURA [None]
  - INJECTION SITE HAEMORRHAGE [None]
  - MEDICATION ERROR [None]
  - SPLENECTOMY [None]
  - VISION BLURRED [None]
